FAERS Safety Report 13486243 (Version 2)
Quarter: 2017Q2

REPORT INFORMATION
  Report Type: Report from Study
  Country: CA (occurrence: CA)
  Receive Date: 20170426
  Receipt Date: 20170428
  Transmission Date: 20170830
  Serious: Yes (Other)
  Sender: FDA-Public Use
  Company Number: CA-PFIZER INC-2017172207

PATIENT
  Age: 1 Day

DRUGS (4)
  1. ALPROSTADIL. [Suspect]
     Active Substance: ALPROSTADIL
     Indication: TRANSPOSITION OF THE GREAT VESSELS
     Dosage: 0.05-0.0125 UG/KG PER MIN
     Route: 041
  2. ALPROSTADIL. [Suspect]
     Active Substance: ALPROSTADIL
     Indication: MITRAL VALVE ATRESIA
  3. ALPROSTADIL. [Suspect]
     Active Substance: ALPROSTADIL
     Indication: UNIVENTRICULAR HEART
  4. ALPROSTADIL. [Suspect]
     Active Substance: ALPROSTADIL
     Indication: PULMONARY VALVE STENOSIS

REACTIONS (4)
  - Apnoea [Unknown]
  - Exostosis [Unknown]
  - Bradycardia [Unknown]
  - Cardiac failure [Unknown]
